FAERS Safety Report 6010265-0 (Version None)
Quarter: 2008Q4

REPORT INFORMATION
  Report Type: 
  Country: None (occurrence: None)
  Receive Date: 20081218
  Receipt Date: 20080429
  Transmission Date: 20090506
  Serious: No
  Sender: FDA-Public Use
  Company Number: A0716445A

PATIENT
  Age: 72 Year
  Sex: Female

DRUGS (6)
  1. FLONASE [Suspect]
     Indication: DRUG USE FOR UNKNOWN INDICATION
     Dosage: 2SPR PER DAY
     Route: 045
     Dates: start: 20070411
  2. UNKNOWN MEDICATION [Concomitant]
  3. SIMVASTATIN [Concomitant]
  4. LEVAQUIN [Concomitant]
  5. LOTEMAX [Concomitant]
  6. DICLOFENAC SODIUM [Concomitant]

REACTIONS (2)
  - PRODUCT QUALITY ISSUE [None]
  - SKIN LACERATION [None]
